FAERS Safety Report 19087288 (Version 3)
Quarter: 2021Q2

REPORT INFORMATION
  Report Type: Spontaneous
  Country: JP (occurrence: JP)
  Receive Date: 20210402
  Receipt Date: 20210630
  Transmission Date: 20210717
  Serious: Yes (Death, Other)
  Sender: FDA-Public Use
  Company Number: JP-JAZZ-2021-JP-005944

PATIENT
  Age: 64 Year
  Sex: Female
  Weight: 59.5 kg

DRUGS (1)
  1. DEFITELIO [Suspect]
     Active Substance: DEFIBROTIDE SODIUM
     Indication: VENOOCCLUSIVE LIVER DISEASE
     Dosage: 25 MILLIGRAM/KILOGRAM
     Route: 042
     Dates: start: 20201022, end: 20201123

REACTIONS (2)
  - Off label use [Unknown]
  - Venoocclusive liver disease [Fatal]

NARRATIVE: CASE EVENT DATE: 20201021
